FAERS Safety Report 4322104-4 (Version None)
Quarter: 2004Q1

REPORT INFORMATION
  Report Type: 
  Country: None (occurrence: None)
  Receive Date: 20040323
  Receipt Date: 20040309
  Transmission Date: 20041129
  Serious: Yes (Other)
  Sender: FDA-Public Use
  Company Number: GB-GLAXOSMITHKLINE-B0326331A

PATIENT
  Age: 55 Year
  Sex: Female
  Weight: 90 kg

DRUGS (4)
  1. LAMOTRIGINE [Suspect]
     Indication: EPILEPSY
     Dosage: 200MG TWICE PER DAY
     Route: 048
     Dates: start: 19970225, end: 20040201
  2. KEPPRA [Suspect]
     Indication: EPILEPSY
     Dosage: 1500MG PER DAY
     Route: 048
     Dates: start: 20010605
  3. PHENOBARBITONE [Concomitant]
     Indication: EPILEPSY
     Dosage: 60MG FOUR TIMES PER DAY
     Route: 048
  4. ELLESTE SOLO [Concomitant]
     Indication: MENOPAUSE
     Dosage: 1MG PER DAY
     Route: 048
     Dates: start: 19970225

REACTIONS (5)
  - ANOREXIA [None]
  - BALANCE DISORDER [None]
  - DRUG INTERACTION [None]
  - INSOMNIA [None]
  - THIRST [None]
